FAERS Safety Report 5518839-8 (Version None)
Quarter: 2007Q4

REPORT INFORMATION
  Report Type: 
  Country: None (occurrence: None)
  Receive Date: 20071113
  Receipt Date: 20071031
  Transmission Date: 20080405
  Serious: Yes (Hospitalization)
  Sender: FDA-Public Use
  Company Number: 2007-03182

PATIENT
  Age: 62 Year
  Sex: Male
  Weight: 64 kg

DRUGS (15)
  1. VELCADE [Suspect]
     Indication: MULTIPLE MYELOMA
     Dosage: 1.30 MG/M2, INTRAVENOUS
     Route: 042
     Dates: start: 20070712, end: 20070723
  2. OXYCODONE HCL [Suspect]
     Dosage: 40.00 MG, ORAL; 0.50 G, INTRAVENOUS
     Route: 048
     Dates: start: 20070704
  3. OXYCODONE HCL [Suspect]
     Dosage: 40.00 MG, ORAL; 0.50 G, INTRAVENOUS
     Route: 048
     Dates: start: 20070704
  4. NOVAMIN                     (PROCHLORPERAZINE) [Concomitant]
  5. MAGNESIUM OXIDE             (MAGNESIUM OXIDE) [Concomitant]
  6. ALLOPURINOL [Concomitant]
  7. RITALIN [Concomitant]
  8. METHYCOBAL                 (MECOBALAMIN) [Concomitant]
  9. CLONAZEPAM [Concomitant]
  10. GLYCYRRHIZA EXTRACT              (GLYCYRRHIZA EXTRACT) [Concomitant]
  11. PROTECADIN                    (LAFUTIDINE) [Concomitant]
  12. ONE-ALPHA        (ALFACALCIDOL) [Concomitant]
  13. ALENDRONATE SODIUM [Concomitant]
  14. LOXONIN               (LOXOPROFEN SODIUM) [Concomitant]
  15. TENORMIN [Concomitant]

REACTIONS (4)
  - DELIRIUM [None]
  - PLATELET COUNT DECREASED [None]
  - PYREXIA [None]
  - WHITE BLOOD CELL COUNT INCREASED [None]
